FAERS Safety Report 8791106 (Version 1)
Quarter: 2012Q4

REPORT INFORMATION
  Report Type: Spontaneous
  Country: US (occurrence: None)
  Receive Date: 20120907
  Receipt Date: 20120907
  Transmission Date: 20130627
  Serious: Yes (Other)
  Sender: FDA-Public Use
  Company Number: JPI-P-024829

PATIENT
  Age: 47 Year
  Sex: Female

DRUGS (3)
  1. XYREM [Suspect]
     Indication: NARCOLEPSY
     Dosage: 4.5 gm (2.25 gm, 2 in 1 D), Oral
     Route: 048
     Dates: start: 20110226, end: 2011
  2. XYREM [Suspect]
     Indication: NARCOLEPSY
     Dosage: (Titrating dose), Oral
     Route: 048
     Dates: start: 2011, end: 2011
  3. XYREM [Suspect]
     Indication: NARCOLEPSY
     Dosage: 9 gm (4.5 gm, 2 in 1 D), Oral
     Route: 048
     Dates: start: 2011

REACTIONS (1)
  - Uterine cancer [None]
